FAERS Safety Report 18282996 (Version 5)
Quarter: 2021Q2

REPORT INFORMATION
  Report Type: Spontaneous
  Country: US (occurrence: US)
  Receive Date: 20200918
  Receipt Date: 20210622
  Transmission Date: 20210717
  Serious: Yes (Other)
  Sender: FDA-Public Use
  Company Number: US-PFIZER INC-2020361006

PATIENT
  Age: 71 Year
  Sex: Female

DRUGS (17)
  1. LYRICA [Suspect]
     Active Substance: PREGABALIN
     Indication: RADICULOPATHY
  2. LYRICA [Suspect]
     Active Substance: PREGABALIN
     Indication: CATARACT
  3. LYRICA [Suspect]
     Active Substance: PREGABALIN
     Indication: FALL
  4. LYRICA [Suspect]
     Active Substance: PREGABALIN
     Indication: PAIN IN EXTREMITY
  5. LYRICA [Suspect]
     Active Substance: PREGABALIN
     Indication: COAGULOPATHY
  6. LYRICA [Suspect]
     Active Substance: PREGABALIN
     Indication: PAIN
     Dosage: 200 MG, 3X/DAY (1 CAP PO (PER ORAL) TID (THREE TIMES A DAY)
     Route: 048
  7. LYRICA [Suspect]
     Active Substance: PREGABALIN
     Indication: ESSENTIAL HYPERTENSION
  8. LYRICA [Suspect]
     Active Substance: PREGABALIN
     Indication: SPEECH DISORDER
  9. LYRICA [Suspect]
     Active Substance: PREGABALIN
     Indication: HYPERLIPIDAEMIA
  10. LYRICA [Suspect]
     Active Substance: PREGABALIN
     Indication: ABDOMINAL PAIN UPPER
  11. LYRICA [Suspect]
     Active Substance: PREGABALIN
     Indication: FATIGUE
  12. LYRICA [Suspect]
     Active Substance: PREGABALIN
     Indication: CEREBRAL INFARCTION
  13. LYRICA [Suspect]
     Active Substance: PREGABALIN
     Indication: ACUTE MYOCARDIAL INFARCTION
  14. LYRICA [Suspect]
     Active Substance: PREGABALIN
     Indication: LUMBAR SPINAL STENOSIS
  15. LYRICA [Suspect]
     Active Substance: PREGABALIN
     Indication: HYPOTHYROIDISM
  16. LYRICA [Suspect]
     Active Substance: PREGABALIN
     Indication: FIBROMYALGIA
  17. LYRICA [Suspect]
     Active Substance: PREGABALIN
     Indication: CHEST PAIN

REACTIONS (1)
  - Cerebrovascular accident [Not Recovered/Not Resolved]
